FAERS Safety Report 9132984 (Version 2)
Quarter: 2013Q1

REPORT INFORMATION
  Report Type: Spontaneous
  Country: US (occurrence: US)
  Receive Date: 20130301
  Receipt Date: 20130312
  Transmission Date: 20140127
  Serious: No
  Sender: FDA-Public Use
  Company Number: US-ASTRAZENECA-2013SE11922

PATIENT
  Age: 63 Year
  Sex: Male
  Weight: 88.5 kg

DRUGS (8)
  1. SEROQUEL [Suspect]
     Indication: SCHIZOPHRENIA, PARANOID TYPE
     Route: 048
     Dates: start: 2007
  2. SEROQUEL [Suspect]
     Indication: SCHIZOPHRENIA, PARANOID TYPE
     Route: 048
  3. SEROQUEL [Suspect]
     Indication: SCHIZOPHRENIA, PARANOID TYPE
     Route: 048
     Dates: end: 2012
  4. SEROQUEL [Suspect]
     Indication: SCHIZOPHRENIA, PARANOID TYPE
     Dosage: GENERIC
     Route: 048
     Dates: start: 2012
  5. IBUPROFEN OTC [Concomitant]
     Indication: MUSCULOSKELETAL STIFFNESS
  6. IBUPROFEN OTC [Concomitant]
     Indication: HEADACHE
  7. FISH OIL [Concomitant]
  8. VITAMINS [Concomitant]

REACTIONS (12)
  - Balance disorder [Not Recovered/Not Resolved]
  - Nocturia [Unknown]
  - Depressed mood [Unknown]
  - Headache [Unknown]
  - Musculoskeletal stiffness [Unknown]
  - Paranoia [Unknown]
  - Hallucination [Unknown]
  - Pollakiuria [Unknown]
  - Hearing impaired [Not Recovered/Not Resolved]
  - Sedation [Unknown]
  - Fatigue [Unknown]
  - Dizziness [Unknown]
